FAERS Safety Report 17651832 (Version 1)
Quarter: 2020Q2

REPORT INFORMATION
  Report Type: Spontaneous
  Country: US (occurrence: US)
  Receive Date: 20200409
  Receipt Date: 20200409
  Transmission Date: 20200713
  Serious: No
  Sender: FDA-Public Use
  Company Number: US-REGENERON PHARMACEUTICALS, INC.-2020-18121

PATIENT

DRUGS (1)
  1. ARCALYST [Suspect]
     Active Substance: RILONACEPT
     Indication: MUCKLE-WELLS SYNDROME
     Dosage: 220 MG, ONCE A WEEK
     Route: 058

REACTIONS (1)
  - Product dose omission [Unknown]
